FAERS Safety Report 5427578-3 (Version None)
Quarter: 2007Q3

REPORT INFORMATION
  Report Type: 
  Country: None (occurrence: None)
  Receive Date: 20070828
  Receipt Date: 20070823
  Transmission Date: 20080115
  Serious: Yes (Hospitalization)
  Sender: FDA-Public Use
  Company Number: B0484277A

PATIENT
  Age: 85 Year
  Sex: Male

DRUGS (11)
  1. SERETIDE [Suspect]
     Indication: ASTHMA
     Dosage: 250MCG TWICE PER DAY
     Route: 055
     Dates: start: 20070802
  2. CHINESE MEDICINE [Suspect]
     Dosage: 7.5MCG THREE TIMES PER DAY
     Route: 048
     Dates: start: 20070806, end: 20070815
  3. PERSANTIN [Concomitant]
     Route: 065
  4. ZANTAC 150 [Concomitant]
     Route: 065
  5. ONON [Concomitant]
     Route: 048
  6. SUNRYTHM [Concomitant]
     Route: 065
  7. SELBEX [Concomitant]
     Route: 048
  8. HARNAL [Concomitant]
     Route: 048
  9. ADALAT [Concomitant]
     Route: 048
  10. THEO-DUR [Concomitant]
     Route: 048
  11. HOKUNALIN [Concomitant]
     Route: 062

REACTIONS (1)
  - DRUG ERUPTION [None]
